FAERS Safety Report 5736055-1 (Version None)
Quarter: 2008Q2

REPORT INFORMATION
  Report Type: 
  Country: None (occurrence: None)
  Receive Date: 20080513
  Receipt Date: 20080513
  Transmission Date: 20081010
  Serious: Yes (Other)
  Sender: FDA-Public Use
  Company Number: None

PATIENT
  Age: 4 Year
  Sex: Male
  Weight: 20.4 kg

DRUGS (1)
  1. HEPARIN LOCK-FLUSH [Suspect]
     Indication: CENTRAL VENOUS CATHETERISATION
     Dosage: 5 MLS = 500 UNITS 3 X WEEKLY OR PRN IV
     Route: 042
     Dates: start: 20080305, end: 20080409

REACTIONS (2)
  - NAUSEA [None]
  - PHARMACEUTICAL PRODUCT COMPLAINT [None]
